FAERS Safety Report 23407216 (Version 1)
Quarter: 2024Q1

REPORT INFORMATION
  Report Type: Spontaneous
  Country: GB (occurrence: GB)
  Receive Date: 20240116
  Receipt Date: 20240116
  Transmission Date: 20240409
  Serious: Yes (Other)
  Sender: FDA-Public Use
  Company Number: None

PATIENT
  Age: 86 Year
  Weight: 84 kg

DRUGS (1)
  1. ATORVASTATIN [Suspect]
     Active Substance: ATORVASTATIN
     Indication: Product used for unknown indication
     Dosage: 1 TO BE TAKEN DAILY TO REDUCE CHOLESTEROL
     Route: 065
     Dates: start: 20230719, end: 20240108

REACTIONS (1)
  - Dyspnoea [Recovering/Resolving]
